FAERS Safety Report 9804202 (Version 1)
Quarter: 2014Q1

REPORT INFORMATION
  Report Type: Spontaneous
  Country: US (occurrence: None)
  Receive Date: 20140106
  Receipt Date: 20140106
  Transmission Date: 20141002
  Serious: Yes (Other)
  Sender: FDA-Public Use
  Company Number: IMP_06920_2013

PATIENT
  Age: 67 Year
  Sex: Male

DRUGS (8)
  1. DIGOXIN [Suspect]
     Indication: ATRIAL FIBRILLATION
  2. DIGOXIN [Suspect]
     Indication: CARDIAC FAILURE
  3. IBUPROFEN [Suspect]
     Indication: GOUT
  4. ATENOL (UNKNOWN) [Concomitant]
  5. HYDROXYZINE (UNKNOWN) [Concomitant]
  6. TAMSULOSIN (UNKNOWN) [Concomitant]
  7. ASPIRIN (UNKNOWN) [Concomitant]
  8. ALLPURINOL (UNKNOWN) [Concomitant]

REACTIONS (16)
  - Decreased appetite [None]
  - Nausea [None]
  - Vomiting [None]
  - Vision blurred [None]
  - Gout [None]
  - Confusional state [None]
  - Mental disorder [None]
  - Depression [None]
  - Heart rate irregular [None]
  - Gravitational oedema [None]
  - Cardiac murmur [None]
  - Renal failure chronic [None]
  - Blood sodium decreased [None]
  - Toxicity to various agents [None]
  - Cardioactive drug level increased [None]
  - Feeling abnormal [None]
